FAERS Safety Report 17886466 (Version 2)
Quarter: 2020Q2

REPORT INFORMATION
  Report Type: Spontaneous
  Country: IN (occurrence: IN)
  Receive Date: 20200611
  Receipt Date: 20200616
  Transmission Date: 20200714
  Serious: Yes (Other)
  Sender: FDA-Public Use
  Company Number: IN-BAUSCH-BL-2020-016609

PATIENT
  Age: 45 Year
  Sex: Male

DRUGS (1)
  1. NIFEDIPINE. [Suspect]
     Active Substance: NIFEDIPINE
     Indication: SECONDARY HYPERTENSION
     Route: 065

REACTIONS (2)
  - Periodontitis [Recovering/Resolving]
  - Gingival hypertrophy [Recovered/Resolved]
